FAERS Safety Report 7138339-1 (Version None)
Quarter: 2010Q4

REPORT INFORMATION
  Report Type: 
  Country: None (occurrence: None)
  Receive Date: 20101206
  Receipt Date: 20101202
  Transmission Date: 20110411
  Serious: Yes (Other)
  Sender: FDA-Public Use
  Company Number: IE-ROCHE-745777

PATIENT
  Sex: Female

DRUGS (10)
  1. BONIVA [Suspect]
     Indication: OSTEOPOROSIS
     Route: 048
  2. CALCICHEW D3 FORTE [Concomitant]
  3. ZIMOVANE [Concomitant]
  4. CARDICOR [Concomitant]
  5. COZAAR [Concomitant]
  6. ALDACTONE [Concomitant]
  7. PREDNISOLONE [Concomitant]
  8. FRUSEMIDE [Concomitant]
  9. LIPITOR [Concomitant]
  10. WARFARIN [Concomitant]

REACTIONS (1)
  - DYSGEUSIA [None]
